FAERS Safety Report 18749869 (Version 8)
Quarter: 2021Q2

REPORT INFORMATION
  Report Type: Spontaneous
  Country: CA (occurrence: CA)
  Receive Date: 20210117
  Receipt Date: 20210610
  Transmission Date: 20210717
  Serious: Yes (Hospitalization, Other)
  Sender: FDA-Public Use
  Company Number: CA-CELLTRION INC.-2021CA000371

PATIENT

DRUGS (11)
  1. INFLECTRA [Interacting]
     Active Substance: INFLIXIMAB-DYYB
     Dosage: 5 MG/KG AT 2, 6, THEN EVERY 8 WEEKS
     Route: 042
     Dates: start: 20210511
  2. INFLECTRA [Suspect]
     Active Substance: INFLIXIMAB-DYYB
     Indication: CROHN^S DISEASE
     Dosage: 5 MG/KG AT 2, 6, THEN EVERY 8 WEEKS
     Route: 042
     Dates: start: 20201126
  3. CORTISONE [Interacting]
     Active Substance: CORTISONE
     Dosage: 5 MG
  4. PREDNISONE. [Interacting]
     Active Substance: PREDNISONE
     Dosage: 25 MG
     Route: 065
  5. LORAZEPAM. [Concomitant]
     Active Substance: LORAZEPAM
     Dosage: UNK
  6. CORTEF [Concomitant]
     Active Substance: HYDROCORTISONE
     Dosage: 200 MG
  7. INFLECTRA [Interacting]
     Active Substance: INFLIXIMAB-DYYB
     Dosage: 5 MG/KG AT 2, 6, THEN EVERY 8 WEEKS
     Route: 042
     Dates: start: 20201209
  8. IMURAN [Interacting]
     Active Substance: AZATHIOPRINE
     Dosage: 1.5 DF (1.5 TABLET)
     Route: 048
     Dates: start: 20201126
  9. INFLECTRA [Interacting]
     Active Substance: INFLIXIMAB-DYYB
     Dosage: 5 MG/KG AT 2, 6, THEN EVERY 8 WEEKS
     Route: 042
     Dates: start: 20210316
  10. INFLECTRA [Interacting]
     Active Substance: INFLIXIMAB-DYYB
     Dosage: 5 MG/KG AT 2, 6, THEN EVERY 8 WEEKS
     Route: 042
     Dates: start: 20210107
  11. CORTISONE [Interacting]
     Active Substance: CORTISONE
     Dosage: 25 MG TAPERING DOSE
     Route: 065

REACTIONS (16)
  - Drug interaction [Not Recovered/Not Resolved]
  - Polymenorrhoea [Not Recovered/Not Resolved]
  - Pain [Not Recovered/Not Resolved]
  - Drug hypersensitivity [Not Recovered/Not Resolved]
  - Haematochezia [Recovered/Resolved]
  - Arthralgia [Unknown]
  - Myalgia [Unknown]
  - Anorectal discomfort [Not Recovered/Not Resolved]
  - Heart rate decreased [Unknown]
  - Blood pressure fluctuation [Unknown]
  - Oral mucosal eruption [Unknown]
  - Urinary incontinence [Not Recovered/Not Resolved]
  - Constipation [Not Recovered/Not Resolved]
  - Muscular weakness [Unknown]
  - Abdominal distension [Not Recovered/Not Resolved]
  - Headache [Not Recovered/Not Resolved]

NARRATIVE: CASE EVENT DATE: 20210104
